FAERS Safety Report 14047900 (Version 1)
Quarter: 2017Q4

REPORT INFORMATION
  Report Type: Spontaneous
  Country: US (occurrence: US)
  Receive Date: 20171005
  Receipt Date: 20171005
  Transmission Date: 20180321
  Serious: No
  Sender: FDA-Public Use
  Company Number: US-LEXICON PHARMACEUTICALS, INC-17-1606-00839

PATIENT
  Sex: Female

DRUGS (12)
  1. IBUPROFEN. [Concomitant]
     Active Substance: IBUPROFEN
  2. LOTRONEX [Concomitant]
     Active Substance: ALOSETRON HYDROCHLORIDE
  3. MELOXICAM. [Concomitant]
     Active Substance: MELOXICAM
  4. TRAMADOL. [Concomitant]
     Active Substance: TRAMADOL
  5. TYLENOL [Concomitant]
     Active Substance: ACETAMINOPHEN
  6. TELOTRISTAT ETHYL [Suspect]
     Active Substance: TELOTRISTAT ETHYL
     Indication: CARCINOID SYNDROME
     Route: 048
     Dates: start: 20170511
  7. RANITIDINE. [Concomitant]
     Active Substance: RANITIDINE
  8. LOSARTAN. [Concomitant]
     Active Substance: LOSARTAN
  9. LIDOCAINE. [Concomitant]
     Active Substance: LIDOCAINE
  10. NORTRIPTYLINE [Concomitant]
     Active Substance: NORTRIPTYLINE
  11. BENTYL [Concomitant]
     Active Substance: DICYCLOMINE HYDROCHLORIDE
  12. DICLOFENAC [Concomitant]
     Active Substance: DICLOFENAC

REACTIONS (2)
  - Diarrhoea [Unknown]
  - Dyschezia [Unknown]

NARRATIVE: CASE EVENT DATE: 2017
